FAERS Safety Report 4837588-2 (Version None)
Quarter: 2005Q4

REPORT INFORMATION
  Report Type: 
  Country: None (occurrence: None)
  Receive Date: 20051122
  Receipt Date: 20051110
  Transmission Date: 20060501
  Serious: Yes (Life-Threatening)
  Sender: FDA-Public Use
  Company Number: 219378

PATIENT

DRUGS (1)
  1. RITUXAN [Suspect]
     Indication: B-CELL LYMPHOMA
     Dosage: 470 MG, INTRAVENOUS
     Route: 042
     Dates: start: 20051012, end: 20051013

REACTIONS (1)
  - ENCEPHALITIS [None]
